FAERS Safety Report 9175816 (Version 1)
Quarter: 2013Q1

REPORT INFORMATION
  Report Type: Spontaneous
  Country: GB (occurrence: GB)
  Receive Date: 20130320
  Receipt Date: 20130320
  Transmission Date: 20140127
  Serious: Yes (Other)
  Sender: FDA-Public Use
  Company Number: GB-BAXTER-2013BAX010338

PATIENT
  Sex: Male

DRUGS (1)
  1. HEMOFIL M [Suspect]
     Indication: FACTOR VIII DEFICIENCY
     Route: 065

REACTIONS (2)
  - Factor VIII inhibition [Not Recovered/Not Resolved]
  - Hepatitis C [Not Recovered/Not Resolved]
